FAERS Safety Report 6299599-2 (Version None)
Quarter: 2009Q3

REPORT INFORMATION
  Report Type: 
  Country: None (occurrence: None)
  Receive Date: 20090806
  Receipt Date: 20090731
  Transmission Date: 20100115
  Serious: Yes (Hospitalization)
  Sender: FDA-Public Use
  Company Number: US-ELI_LILLY_AND_COMPANY-US200906003215

PATIENT
  Sex: Male

DRUGS (2)
  1. HUMULIN R [Suspect]
  2. INSULIN [Concomitant]
     Dates: start: 19790101

REACTIONS (4)
  - FALL [None]
  - GLYCOSYLATED HAEMOGLOBIN INCREASED [None]
  - OPEN FRACTURE [None]
  - VISUAL ACUITY REDUCED [None]
